FAERS Safety Report 9497979 (Version 1)
Quarter: 2013Q3

REPORT INFORMATION
  Report Type: Spontaneous
  Country: US (occurrence: US)
  Receive Date: 20130904
  Receipt Date: 20130904
  Transmission Date: 20140515
  Serious: No
  Sender: FDA-Public Use
  Company Number: US-AMGEN-USASP2013059307

PATIENT
  Age: 2 Year
  Sex: Female

DRUGS (3)
  1. ENBREL [Suspect]
     Indication: PSORIATIC ARTHROPATHY
     Dosage: 0.6 ML, QWK
     Route: 065
  2. ENBREL [Suspect]
     Indication: JUVENILE IDIOPATHIC ARTHRITIS
  3. ENBREL [Suspect]
     Indication: UVEITIS

REACTIONS (1)
  - Aggression [Unknown]
